FAERS Safety Report 8156869-0 (Version None)
Quarter: 2012Q1

REPORT INFORMATION
  Report Type: 
  Country: None (occurrence: None)
  Receive Date: 20120222
  Receipt Date: 20120215
  Transmission Date: 20120608
  Serious: No
  Sender: FDA-Public Use
  Company Number: JP-GLAXOSMITHKLINE-B0752042A

PATIENT
  Sex: Female
  Weight: 37 kg

DRUGS (5)
  1. ADVAIR DISKUS 100/50 [Concomitant]
     Indication: ASTHMA
     Route: 055
     Dates: start: 20100621
  2. CEFAZOLIN SODIUM [Concomitant]
     Indication: PROPHYLAXIS AGAINST DIARRHOEA
     Route: 048
     Dates: start: 20110607
  3. MYSER [Concomitant]
     Indication: DERMATITIS
     Route: 061
  4. XELODA [Suspect]
     Dosage: 1200MG PER DAY
     Route: 048
     Dates: start: 20110607
  5. TYKERB [Suspect]
     Indication: BREAST CANCER
     Dosage: 1250MG PER DAY
     Route: 048
     Dates: start: 20110607

REACTIONS (1)
  - PARONYCHIA [None]
